FAERS Safety Report 5588852-3 (Version None)
Quarter: 2008Q1

REPORT INFORMATION
  Report Type: 
  Country: None (occurrence: None)
  Receive Date: 20080111
  Receipt Date: 20080107
  Transmission Date: 20080703
  Serious: Yes (Hospitalization)
  Sender: FDA-Public Use
  Company Number: SE-PFIZER INC-2008001876

PATIENT
  Sex: Female

DRUGS (2)
  1. DIFLUCAN [Suspect]
     Indication: FUNGAL INFECTION
     Dosage: DAILY DOSE:150MG
     Route: 048
     Dates: start: 20070822, end: 20070825
  2. TRIMETOPRIM ^NAF^ [Concomitant]

REACTIONS (1)
  - GENITAL ULCERATION [None]
